FAERS Safety Report 9479561 (Version 1)
Quarter: 2013Q3

REPORT INFORMATION
  Report Type: Spontaneous
  Country: NO (occurrence: NO)
  Receive Date: 20130827
  Receipt Date: 20130827
  Transmission Date: 20140515
  Serious: Yes (Life-Threatening)
  Sender: FDA-Public Use
  Company Number: NO-UCBSA-095938

PATIENT
  Age: 53 Year
  Sex: Female

DRUGS (2)
  1. KEPPRA [Suspect]
     Indication: EPILEPSY
     Route: 048
  2. TOPIMAX [Suspect]
     Indication: EPILEPSY
     Route: 048

REACTIONS (1)
  - Ventricular tachycardia [Recovered/Resolved]
